FAERS Safety Report 5362666-1 (Version None)
Quarter: 2007Q2

REPORT INFORMATION
  Report Type: 
  Country: None (occurrence: None)
  Receive Date: 20070619
  Receipt Date: 20070613
  Transmission Date: 20071010
  Serious: Yes (Hospitalization)
  Sender: FDA-Public Use
  Company Number: JP-ABBOTT-07P-087-0371352-00

PATIENT
  Age: 77 Year
  Sex: Male

DRUGS (3)
  1. CLARITHROMYCIN [Suspect]
     Indication: NASOPHARYNGITIS
     Route: 048
  2. CLARITHROMYCIN [Suspect]
  3. STRONG NEO-MINOPHAGEN C [Concomitant]
     Indication: ASCITES
     Route: 042

REACTIONS (1)
  - RHABDOMYOLYSIS [None]
